FAERS Safety Report 5628797-3 (Version None)
Quarter: 2008Q1

REPORT INFORMATION
  Report Type: 
  Country: None (occurrence: None)
  Receive Date: 20080215
  Receipt Date: 20080206
  Transmission Date: 20080703
  Serious: Yes (Other)
  Sender: FDA-Public Use
  Company Number: US-PFIZER INC-2008012804

PATIENT
  Age: 60 Year
  Sex: Male
  Weight: 72.1 kg

DRUGS (1)
  1. VIAGRA [Suspect]
     Route: 065

REACTIONS (1)
  - EJACULATION DISORDER [None]
